FAERS Safety Report 5936063-1 (Version None)
Quarter: 2008Q4

REPORT INFORMATION
  Report Type: 
  Country: None (occurrence: None)
  Receive Date: 20081030
  Receipt Date: 20081020
  Transmission Date: 20090506
  Serious: Yes (Other)
  Sender: FDA-Public Use
  Company Number: JP-PFIZER INC-2008086414

PATIENT

DRUGS (1)
  1. SOL-MELCORT [Suspect]

REACTIONS (1)
  - RENAL IMPAIRMENT [None]
